FAERS Safety Report 24423843 (Version 1)
Quarter: 2024Q4

REPORT INFORMATION
  Report Type: Spontaneous
  Country: FR (occurrence: FR)
  Receive Date: 20241010
  Receipt Date: 20241010
  Transmission Date: 20250115
  Serious: Yes (Hospitalization)
  Sender: ORGANON
  Company Number: None

PATIENT
  Age: 90 Year
  Sex: Female

DRUGS (4)
  1. MIRTAZAPINE [Suspect]
     Active Substance: MIRTAZAPINE
     Indication: Wrong patient
     Dosage: 15 MG
     Route: 048
     Dates: start: 20240810, end: 20240810
  2. ALFUZOSIN [Suspect]
     Active Substance: ALFUZOSIN
     Indication: Wrong patient
     Dosage: 2.5 MG
     Route: 048
     Dates: start: 20240810, end: 20240810
  3. PREGABALIN [Suspect]
     Active Substance: PREGABALIN
     Indication: Wrong patient
     Dosage: 50 MG
     Route: 048
     Dates: start: 20240810, end: 20240810
  4. OXAZEPAM [Suspect]
     Active Substance: OXAZEPAM
     Indication: Wrong patient
     Dosage: 5 MG
     Route: 048
     Dates: start: 20240810, end: 20240810

REACTIONS (2)
  - Hypotension [Recovered/Resolved]
  - Wrong patient received product [Recovered/Resolved]

NARRATIVE: CASE EVENT DATE: 20240810
